FAERS Safety Report 7799183-5 (Version None)
Quarter: 2011Q4

REPORT INFORMATION
  Report Type: 
  Country: None (occurrence: None)
  Receive Date: 20111006
  Receipt Date: 20110928
  Transmission Date: 20120403
  Serious: Yes (Hospitalization, Other)
  Sender: FDA-Public Use
  Company Number: US-AMGEN-USASP2011047277

PATIENT
  Age: 76 Year
  Sex: Male

DRUGS (4)
  1. NPLATE [Suspect]
     Indication: IDIOPATHIC THROMBOCYTOPENIC PURPURA
     Dosage: 1 MUG/KG, UNK
     Dates: start: 20110724
  2. CALCIUM CARBONATE [Concomitant]
     Indication: OSTEOPOROSIS
  3. IMODIUM [Concomitant]
     Indication: DIARRHOEA
  4. VITAMIN D [Concomitant]

REACTIONS (6)
  - INTERNATIONAL NORMALISED RATIO INCREASED [None]
  - DEEP VEIN THROMBOSIS [None]
  - PULMONARY EMBOLISM [None]
  - VENA CAVA FILTER INSERTION [None]
  - PLATELET COUNT DECREASED [None]
  - CONTUSION [None]
